FAERS Safety Report 12918314 (Version 1)
Quarter: 2016Q4

REPORT INFORMATION
  Report Type: Spontaneous
  Country: US (occurrence: US)
  Receive Date: 20161107
  Receipt Date: 20161107
  Transmission Date: 20170207
  Serious: Yes (Hospitalization)
  Sender: FDA-Public Use
  Company Number: US-BAYER-2016-208457

PATIENT
  Age: 54 Year
  Sex: Male

DRUGS (3)
  1. ENOXAPARIN [Interacting]
     Active Substance: ENOXAPARIN
  2. ACETYLSALICYLIC ACID (} 100 MG) [Suspect]
     Active Substance: ASPIRIN
  3. IBUPROFEN. [Interacting]
     Active Substance: IBUPROFEN
     Indication: TENSION HEADACHE
     Dosage: UNK

REACTIONS (3)
  - Oesophageal ulcer [None]
  - Labelled drug-drug interaction medication error [None]
  - Haematemesis [None]
